FAERS Safety Report 4693415-8 (Version None)
Quarter: 2005Q2

REPORT INFORMATION
  Report Type: 
  Country: None (occurrence: None)
  Receive Date: 20050617
  Receipt Date: 20050607
  Transmission Date: 20051028
  Serious: Yes (Hospitalization)
  Sender: FDA-Public Use
  Company Number: FR-BRISTOL-MYERS SQUIBB COMPANY-12996930

PATIENT
  Age: 32 Year
  Sex: Male

DRUGS (5)
  1. DIDANOSINE [Suspect]
     Dates: end: 20040729
  2. STAVUDINE [Suspect]
  3. ADEFOVIR [Suspect]
     Indication: HEPATITIS B
     Dates: start: 20020101
  4. INDINAVIR [Suspect]
     Dates: start: 19970401
  5. LAMIVUDINE [Suspect]

REACTIONS (1)
  - FANCONI SYNDROME [None]
